FAERS Safety Report 10290051 (Version 2)
Quarter: 2014Q3

REPORT INFORMATION
  Report Type: Spontaneous
  Country: BR (occurrence: BR)
  Receive Date: 20140710
  Receipt Date: 20140710
  Transmission Date: 20150326
  Serious: Yes (Other)
  Sender: FDA-Public Use
  Company Number: BR-PFIZER INC-2014181494

PATIENT
  Sex: Female

DRUGS (3)
  1. OSTEONUTRI [Concomitant]
     Indication: OSTEOPOROSIS
     Dosage: UNK
  2. LYRICA [Suspect]
     Active Substance: PREGABALIN
     Indication: FIBROMYALGIA
     Dosage: UNK
     Dates: start: 20140625
  3. OSTEOTEC [Concomitant]
     Indication: OSTEOPOROSIS
     Dosage: 150 MG, ONCE MONTHLY

REACTIONS (3)
  - Therapeutic response changed [Unknown]
  - Abasia [Not Recovered/Not Resolved]
  - Fear [Unknown]

NARRATIVE: CASE EVENT DATE: 201406
